FAERS Safety Report 20319218 (Version 1)
Quarter: 2022Q1

REPORT INFORMATION
  Report Type: Spontaneous
  Country: IN (occurrence: IN)
  Receive Date: 20220110
  Receipt Date: 20220110
  Transmission Date: 20220423
  Serious: Yes (Death, Hospitalization, Other)
  Sender: FDA-Public Use
  Company Number: IN-SCALL-2021-IN-000332

PATIENT
  Age: 65 Year
  Sex: Female

DRUGS (2)
  1. RABEPRAZOLE SODIUM [Suspect]
     Active Substance: RABEPRAZOLE SODIUM
     Indication: Gastrooesophageal reflux disease
     Route: 048
  2. PANTOPRAZOLE [Suspect]
     Active Substance: PANTOPRAZOLE
     Indication: Gastrooesophageal reflux disease
     Route: 065

REACTIONS (6)
  - Leukocytosis [Unknown]
  - Hypoglycaemia [Unknown]
  - Systemic candida [Fatal]
  - Gastric perforation [Recovered/Resolved]
  - Neutrophilia [Unknown]
  - Anaemia [Unknown]
